FAERS Safety Report 20049277 (Version 1)
Quarter: 2021Q4

REPORT INFORMATION
  Report Type: Spontaneous
  Country: US (occurrence: None)
  Receive Date: 20211109
  Receipt Date: 20211109
  Transmission Date: 20220303
  Serious: Yes (Disabling)
  Sender: FDA-Public Use
  Company Number: None

PATIENT
  Age: 65 Year
  Sex: Female
  Weight: 89.55 kg

DRUGS (4)
  1. AVASTIN [Suspect]
     Active Substance: BEVACIZUMAB
     Indication: Macular degeneration
     Dates: start: 20200201, end: 20210301
  2. INSULIN NOS [Suspect]
     Active Substance: INSULIN NOS
  3. KEPPRA [Suspect]
     Active Substance: LEVETIRACETAM
  4. COREG [Suspect]
     Active Substance: CARVEDILOL

REACTIONS (3)
  - Cataract [None]
  - Retinal detachment [None]
  - Blindness [None]

NARRATIVE: CASE EVENT DATE: 20200301
